FAERS Safety Report 10785657 (Version 1)
Quarter: 2015Q1

REPORT INFORMATION
  Report Type: Spontaneous
  Country: US (occurrence: None)
  Receive Date: 20150209
  Receipt Date: 20150209
  Transmission Date: 20150721
  Serious: Yes (Hospitalization)
  Sender: FDA-Public Use
  Company Number: FK201500596

PATIENT
  Age: 57 Year
  Sex: Male

DRUGS (3)
  1. LEVOFLOXACIN. [Suspect]
     Active Substance: LEVOFLOXACIN
     Indication: INFECTION
     Dosage: NOT OTHERWISE SPECIFIED
     Route: 042
  2. LEVOFLOXACIN. [Suspect]
     Active Substance: LEVOFLOXACIN
     Indication: INFECTION
     Route: 048
  3. GENTAMICIN. [Concomitant]
     Active Substance: GENTAMICIN

REACTIONS (11)
  - Bacteriuria [None]
  - Meningitis [None]
  - Decreased appetite [None]
  - Orchitis [None]
  - Drug ineffective [None]
  - Escherichia infection [None]
  - Bacteraemia [None]
  - Post procedural infection [None]
  - Nausea [None]
  - Vomiting [None]
  - Back pain [None]
